FAERS Safety Report 9909713 (Version 1)
Quarter: 2014Q1

REPORT INFORMATION
  Report Type: Spontaneous
  Country: US (occurrence: None)
  Receive Date: 20140218
  Receipt Date: 20140218
  Transmission Date: 20141002
  Serious: No
  Sender: FDA-Public Use
  Company Number: None

PATIENT
  Age: 8 Year
  Sex: Female
  Weight: 29.48 kg

DRUGS (1)
  1. REMERON [Suspect]
     Indication: SLEEP DISORDER
     Route: 048

REACTIONS (2)
  - Tic [None]
  - Muscle twitching [None]
